FAERS Safety Report 7635354-6 (Version None)
Quarter: 2011Q3

REPORT INFORMATION
  Report Type: 
  Country: None (occurrence: None)
  Receive Date: 20110726
  Receipt Date: 20100723
  Transmission Date: 20111222
  Serious: No
  Sender: FDA-Public Use
  Company Number: US-GLAXOSMITHKLINE-A0872100A

PATIENT
  Sex: Male

DRUGS (2)
  1. EXTINA [Suspect]
     Route: 061
  2. LUXIQ [Suspect]
     Route: 061

REACTIONS (1)
  - BLOOD GLUCOSE INCREASED [None]
